FAERS Safety Report 8110447-8 (Version None)
Quarter: 2012Q1

REPORT INFORMATION
  Report Type: 
  Country: None (occurrence: None)
  Receive Date: 20120202
  Receipt Date: 20120125
  Transmission Date: 20120608
  Serious: Yes (Other)
  Sender: FDA-Public Use
  Company Number: US-ASTRAZENECA-2012SE01857

PATIENT
  Age: 57 Year
  Sex: Female
  Weight: 59 kg

DRUGS (7)
  1. SEROQUEL [Suspect]
     Route: 048
  2. SEROQUEL [Suspect]
     Indication: SLEEP DISORDER
     Dosage: 100 MG IN THE MORNING AND 300 MG AT NIGHT
     Route: 048
  3. SEROQUEL [Suspect]
     Indication: ANXIETY
     Dosage: 100 MG IN THE MORNING AND 300 MG AT NIGHT
     Route: 048
  4. SEROQUEL [Suspect]
     Route: 048
  5. SEROQUEL [Suspect]
     Route: 048
  6. SEROQUEL [Suspect]
     Indication: DEPRESSION
     Dosage: 100 MG IN THE MORNING AND 300 MG AT NIGHT
     Route: 048
  7. NEXIUM [Suspect]
     Route: 048

REACTIONS (6)
  - DRUG DOSE OMISSION [None]
  - OFF LABEL USE [None]
  - ABNORMAL BEHAVIOUR [None]
  - FALL [None]
  - WRIST FRACTURE [None]
  - CONTUSION [None]
